FAERS Safety Report 20772283 (Version 1)
Quarter: 2022Q2

REPORT INFORMATION
  Report Type: Spontaneous
  Country: US (occurrence: US)
  Receive Date: 20220502
  Receipt Date: 20220502
  Transmission Date: 20220721
  Serious: Yes (Hospitalization, Other)
  Sender: FDA-Public Use
  Company Number: US-SA-SAC20220428001866

PATIENT
  Age: 54 Year
  Sex: Male

DRUGS (6)
  1. DUPIXENT [Suspect]
     Active Substance: DUPILUMAB
     Indication: Neurodermatitis
     Dosage: 1 DOSE OF DUPIXENT (2 INJECTIONS)
     Route: 058
     Dates: start: 202202, end: 202202
  2. DUPIXENT [Suspect]
     Active Substance: DUPILUMAB
     Dosage: 300 MG, QOW
     Route: 058
  3. HERBALS\SAW PALMETTO [Concomitant]
     Active Substance: HERBALS\SAW PALMETTO
     Dosage: UNK
  4. BETA SITOSTEROL [Concomitant]
     Dosage: UNK
  5. HERBALS [Concomitant]
     Active Substance: HERBALS
     Dosage: UNK
  6. STINGING NETTLE ROOT [Concomitant]
     Dosage: UNK

REACTIONS (9)
  - Pneumonia [Unknown]
  - Gastrointestinal injury [Unknown]
  - Pulmonary oedema [Unknown]
  - Dysuria [Unknown]
  - Dyspnoea [Unknown]
  - Panic attack [Unknown]
  - Hypertension [Unknown]
  - Therapy interrupted [Unknown]
  - Product use in unapproved indication [Unknown]

NARRATIVE: CASE EVENT DATE: 20220201
